FAERS Safety Report 25447528 (Version 1)
Quarter: 2025Q2

REPORT INFORMATION
  Report Type: Spontaneous
  Country: DE (occurrence: DE)
  Receive Date: 20250617
  Receipt Date: 20250617
  Transmission Date: 20250717
  Serious: Yes (Hospitalization, Other)
  Sender: MYLAN
  Company Number: DE-BRISTOL-MYERS SQUIBB COMPANY-2025-079046

PATIENT
  Age: 60 Year
  Sex: Male

DRUGS (14)
  1. LENALIDOMIDE [Suspect]
     Active Substance: LENALIDOMIDE
     Indication: Plasma cell myeloma
     Dates: start: 201702, end: 201705
  2. LENALIDOMIDE [Suspect]
     Active Substance: LENALIDOMIDE
     Dates: start: 201706, end: 201708
  3. LENALIDOMIDE [Suspect]
     Active Substance: LENALIDOMIDE
     Dates: start: 201808, end: 202006
  4. LENALIDOMIDE [Suspect]
     Active Substance: LENALIDOMIDE
  5. DEXAMETHASONE [Suspect]
     Active Substance: DEXAMETHASONE
     Indication: Plasma cell myeloma
     Dates: start: 201702, end: 201705
  6. DEXAMETHASONE [Suspect]
     Active Substance: DEXAMETHASONE
     Dates: start: 201706, end: 201708
  7. DEXAMETHASONE [Suspect]
     Active Substance: DEXAMETHASONE
     Dates: start: 201708, end: 201806
  8. DEXAMETHASONE [Suspect]
     Active Substance: DEXAMETHASONE
  9. CARFILZOMIB [Suspect]
     Active Substance: CARFILZOMIB
     Indication: Plasma cell myeloma
     Dates: start: 201702, end: 201705
  10. CARFILZOMIB [Suspect]
     Active Substance: CARFILZOMIB
     Dates: start: 201706, end: 201708
  11. CARFILZOMIB [Suspect]
     Active Substance: CARFILZOMIB
     Dates: start: 201708, end: 201806
  12. ZOLEDRONIC ACID [Suspect]
     Active Substance: ZOLEDRONIC ACID
     Indication: Plasma cell myeloma
     Dates: start: 201808, end: 202006
  13. ZOLEDRONIC ACID [Suspect]
     Active Substance: ZOLEDRONIC ACID
     Dosage: 4 MILLIGRAM, Q28D
  14. DARATUMUMAB [Suspect]
     Active Substance: DARATUMUMAB
     Indication: Plasma cell myeloma
     Dates: start: 202206, end: 202211

REACTIONS (5)
  - Acute kidney injury [Unknown]
  - Transient ischaemic attack [Unknown]
  - Osteolysis [Unknown]
  - Infection susceptibility increased [Unknown]
  - Off label use [Unknown]

NARRATIVE: CASE EVENT DATE: 20230201
